FAERS Safety Report 6347948-9 (Version None)
Quarter: 2009Q3

REPORT INFORMATION
  Report Type: 
  Country: None (occurrence: None)
  Receive Date: 20090910
  Receipt Date: 20090903
  Transmission Date: 20100115
  Serious: Yes (Hospitalization)
  Sender: FDA-Public Use
  Company Number: PHHO2009IT07270

PATIENT
  Sex: Male
  Weight: 66 kg

DRUGS (9)
  1. EXELON [Suspect]
     Indication: DEMENTIA
     Dosage: 6MG
     Route: 048
     Dates: start: 20090116, end: 20090601
  2. EXELON [Suspect]
     Dosage: NO MED
     Dates: start: 20090602, end: 20090611
  3. EXELON [Suspect]
     Dosage: UNK
     Dates: start: 20090612
  4. DOPAMINERGIC AGENTS [Concomitant]
     Dosage: UNK
  5. RIVOTRIL [Concomitant]
     Indication: INSOMNIA
     Dosage: UNK
     Dates: end: 20090609
  6. MIRAPEX [Concomitant]
     Indication: MOTOR DYSFUNCTION
  7. SEROQUEL [Concomitant]
     Indication: AGITATION
  8. COMTAN [Concomitant]
     Indication: MOTOR DYSFUNCTION
  9. MADOPAR [Concomitant]
     Indication: MOTOR DYSFUNCTION

REACTIONS (4)
  - AGITATION [None]
  - FALL [None]
  - MOTOR DYSFUNCTION [None]
  - MUSCLE RIGIDITY [None]
